FAERS Safety Report 9148303 (Version 1)
Quarter: 2013Q1

REPORT INFORMATION
  Report Type: Spontaneous
  Country: US (occurrence: None)
  Receive Date: 20130214
  Receipt Date: 20130214
  Transmission Date: 20140127
  Serious: Yes (Death)
  Sender: FDA-Public Use
  Company Number: TIR-01770

PATIENT
  Age: 41 Year
  Sex: Female

DRUGS (4)
  1. LEVOTHYROXINE [Suspect]
     Indication: HYPOTHYROIDISM
     Route: 048
  2. LEVOTHYROXINE [Suspect]
     Route: 048
  3. SUNITINIB [Concomitant]
  4. AMG-386 [Concomitant]

REACTIONS (8)
  - Blood thyroid stimulating hormone increased [None]
  - Thyroxine decreased [None]
  - Temperature intolerance [None]
  - Depression [None]
  - Decreased appetite [None]
  - Insomnia [None]
  - Neoplasm progression [None]
  - Renal cancer metastatic [None]
